FAERS Safety Report 23572113 (Version 2)
Quarter: 2024Q4

REPORT INFORMATION
  Report Type: Spontaneous
  Country: US (occurrence: US)
  Receive Date: 20240227
  Receipt Date: 20241125
  Transmission Date: 20250115
  Serious: No
  Sender: AVADEL CNS PHARMACEUTICALS, LLC
  Company Number: US-AVADEL CNS PHARMACEUTICALS, LLC-2024AVA00096

PATIENT
  Age: 37 Year
  Sex: Male
  Weight: 99.773 kg

DRUGS (15)
  1. LUMRYZ [Suspect]
     Active Substance: SODIUM OXYBATE
     Indication: Narcolepsy
     Dosage: 4.5 G
     Route: 048
     Dates: start: 20231117
  2. LUMRYZ [Suspect]
     Active Substance: SODIUM OXYBATE
     Indication: Cataplexy
     Dosage: 4.5 G
     Route: 048
     Dates: start: 2024
  3. LUMRYZ [Suspect]
     Active Substance: SODIUM OXYBATE
     Indication: Narcolepsy
     Dosage: 6 G, ONCE NIGHTLY
     Route: 048
     Dates: end: 2024
  4. LUMRYZ [Suspect]
     Active Substance: SODIUM OXYBATE
     Indication: Cataplexy
     Dosage: 6 G, ONCE NIGHTLY
     Route: 048
     Dates: start: 202410
  5. LUMRYZ [Suspect]
     Active Substance: SODIUM OXYBATE
     Indication: Narcolepsy
     Dosage: 7.5 G, ONCE NIGHTLY
     Route: 048
     Dates: start: 2024, end: 202410
  6. LUMRYZ [Suspect]
     Active Substance: SODIUM OXYBATE
     Indication: Cataplexy
  7. BUPROPION [Concomitant]
     Active Substance: BUPROPION
     Dosage: 300 MG, ONCE DAILY IN THE MORNING
  8. HUMALOG [Concomitant]
     Active Substance: INSULIN LISPRO
  9. METFORMIN HYDROCHLORIDE [Concomitant]
     Active Substance: METFORMIN HYDROCHLORIDE
     Dosage: 500 MG, TWICE DAILY
  10. ADDERALL [Concomitant]
     Active Substance: AMPHETAMINE ASPARTATE\AMPHETAMINE SULFATE\DEXTROAMPHETAMINE SACCHARATE\DEXTROAMPHETAMINE SULFATE
     Dosage: 20 MG, ONCE DAILY
  11. ATENOLOL [Concomitant]
     Active Substance: ATENOLOL
     Dosage: 50 MG, ONCE DAILY
  12. VILAZODONE [Concomitant]
     Active Substance: VILAZODONE
     Dosage: 40 MG, ONCE DAILY
  13. LEVOTHYROXINE [Concomitant]
     Active Substance: LEVOTHYROXINE
     Dosage: 100 ?G, ONCE DAILY
  14. PANTOPRAZOLE [Concomitant]
     Active Substance: PANTOPRAZOLE
     Dosage: 40 MG, ONCE DAILY
  15. ATORVASTATIN [Concomitant]
     Active Substance: ATORVASTATIN
     Dosage: 20 MG, ONCE DAILY

REACTIONS (8)
  - Initial insomnia [Unknown]
  - Gait disturbance [Unknown]
  - Mental disorder [Unknown]
  - Judgement impaired [Not Recovered/Not Resolved]
  - Somnolence [Not Recovered/Not Resolved]
  - Dizziness [Unknown]
  - Nausea [Not Recovered/Not Resolved]
  - Product dose omission issue [Not Recovered/Not Resolved]

NARRATIVE: CASE EVENT DATE: 20240805
